FAERS Safety Report 9432327 (Version 1)
Quarter: 2013Q3

REPORT INFORMATION
  Report Type: Spontaneous
  Country: DE (occurrence: DE)
  Receive Date: 20130731
  Receipt Date: 20130731
  Transmission Date: 20140515
  Serious: Yes (Hospitalization)
  Sender: FDA-Public Use
  Company Number: DE-UCBSA-093237

PATIENT
  Age: 82 Year
  Sex: Female

DRUGS (7)
  1. KEPPRA [Suspect]
     Dosage: 250 MG, 4 TABLETS, TOTAL AMOUNT: 1000 MG
  2. BELOC ZOK [Suspect]
     Dosage: TOTAL AMOUNT: 200 MG
  3. LISINOPRIL [Suspect]
     Dosage: TOTAL AMOUNT: 40 MG
  4. CARMEN [Suspect]
     Dosage: TOTAL AMOUNT: 40 MG
  5. AGGRENOX RETARD [Suspect]
     Dosage: 200/25, 4 TABLETS
  6. GLIB-RATIOPHARM [Suspect]
     Dosage: 1.75, 1 TABLET, TOTAL AMOUNT: 1.75 MG
  7. SIMVASTATIN [Suspect]
     Dosage: 4 TABLETS

REACTIONS (1)
  - Accidental overdose [Unknown]
